FAERS Safety Report 8613569-8 (Version None)
Quarter: 2012Q3

REPORT INFORMATION
  Report Type: 
  Country: None (occurrence: None)
  Receive Date: 20120823
  Receipt Date: 20120808
  Transmission Date: 20120928
  Serious: Yes (Hospitalization)
  Sender: FDA-Public Use
  Company Number: US-009507513-1208USA005846

PATIENT

DRUGS (3)
  1. COPEGUS [Suspect]
     Dosage: UNK
     Dates: end: 20120126
  2. VICTRELIS [Suspect]
     Indication: HEPATITIS C
     Dosage: 800 MG, TID
     Route: 048
     Dates: start: 20111125, end: 20120126
  3. PEGASYS [Suspect]
     Dosage: UNK
     Dates: end: 20120126

REACTIONS (4)
  - ANAEMIA [None]
  - NEUTROPENIA [None]
  - ANAL ABSCESS [None]
  - SUBCUTANEOUS ABSCESS [None]
